FAERS Safety Report 10744101 (Version 1)
Quarter: 2015Q1

REPORT INFORMATION
  Report Type: Spontaneous
  Country: US (occurrence: None)
  Receive Date: 20150123
  Receipt Date: 20150123
  Transmission Date: 20150721
  Serious: No
  Sender: FDA-Public Use
  Company Number: None

PATIENT
  Age: 68 Year
  Sex: Female
  Weight: 56.7 kg

DRUGS (1)
  1. PROCAINE [Suspect]
     Active Substance: PROCAINE
     Indication: ENDODONTIC PROCEDURE
     Dates: start: 20150120, end: 20150120

REACTIONS (5)
  - Influenza like illness [None]
  - Ear pain [None]
  - Feeling abnormal [None]
  - Asthenia [None]
  - Headache [None]

NARRATIVE: CASE EVENT DATE: 20150120
